FAERS Safety Report 5061281-7 (Version None)
Quarter: 2006Q3

REPORT INFORMATION
  Report Type: 
  Country: None (occurrence: None)
  Receive Date: 20060719
  Receipt Date: 20060719
  Transmission Date: 20061208
  Serious: Yes (Hospitalization)
  Sender: FDA-Public Use
  Company Number: None

PATIENT
  Age: 56 Year
  Sex: Female

DRUGS (2)
  1. CYCLOPHOSPHAMIDE [Suspect]
     Indication: NEOPLASM MALIGNANT
     Dosage: 1080 MG  ONE TIME
     Dates: start: 20060607
  2. DOXORUBICIN [Suspect]
     Indication: NEOPLASM MALIGNANT
     Dosage: 108 MG  I TIME
     Dates: start: 20060607

REACTIONS (1)
  - FEBRILE NEUTROPENIA [None]
